FAERS Safety Report 15905341 (Version 1)
Quarter: 2019Q1

REPORT INFORMATION
  Report Type: Spontaneous
  Country: US (occurrence: US)
  Receive Date: 20190201
  Receipt Date: 20190201
  Transmission Date: 20190417
  Serious: Yes (Death)
  Sender: FDA-Public Use
  Company Number: None

PATIENT
  Age: 76 Year
  Sex: Female

DRUGS (16)
  1. SILDENAFIL. [Suspect]
     Active Substance: SILDENAFIL
     Indication: PRODUCT USED FOR UNKNOWN INDICATION
     Route: 048
     Dates: start: 20151120
  2. DIGOX [Concomitant]
     Active Substance: DIGOXIN
  3. DONEPEZIL. [Concomitant]
     Active Substance: DONEPEZIL
  4. LOSARTAN. [Concomitant]
     Active Substance: LOSARTAN
  5. WARFARIN [Concomitant]
     Active Substance: WARFARIN
  6. DILT - XR [Concomitant]
  7. MONTELUKAST [Concomitant]
     Active Substance: MONTELUKAST SODIUM
  8. PREDNISONE. [Concomitant]
     Active Substance: PREDNISONE
  9. SYMBICORT [Concomitant]
     Active Substance: BUDESONIDE\FORMOTEROL FUMARATE DIHYDRATE
  10. ATORVASTATIN [Concomitant]
     Active Substance: ATORVASTATIN
  11. GABAPENTIN. [Concomitant]
     Active Substance: GABAPENTIN
  12. FUROSEMIDE. [Concomitant]
     Active Substance: FUROSEMIDE
  13. METOPROLOL TARTRATE. [Concomitant]
     Active Substance: METOPROLOL TARTRATE
  14. LATANOPROST. [Concomitant]
     Active Substance: LATANOPROST
  15. POT CL MICRO [Concomitant]
  16. SPIRIVA [Concomitant]
     Active Substance: TIOTROPIUM BROMIDE MONOHYDRATE

REACTIONS (1)
  - Death [None]

NARRATIVE: CASE EVENT DATE: 20190126
